FAERS Safety Report 8134454-4 (Version None)
Quarter: 2012Q1

REPORT INFORMATION
  Report Type: 
  Country: None (occurrence: None)
  Receive Date: 20120214
  Receipt Date: 20120214
  Transmission Date: 20120608
  Serious: Yes (Disabling, Other)
  Sender: FDA-Public Use
  Company Number: None

PATIENT
  Sex: Female
  Weight: 58.967 kg

DRUGS (2)
  1. EXCEDRIN PMS [Concomitant]
     Indication: ANALGESIC THERAPY
     Dosage: 1-2 PILLS EVERY 4-6 HOURS
     Route: 048
     Dates: start: 20110901, end: 20120110
  2. EXCEDRIN (MIGRAINE) [Suspect]
     Indication: MIGRAINE
     Dosage: 1-2 PILLS
     Route: 048
     Dates: start: 20110601, end: 20111209

REACTIONS (18)
  - TABLET PHYSICAL ISSUE [None]
  - DIZZINESS [None]
  - BALANCE DISORDER [None]
  - DYSPNOEA [None]
  - FALL [None]
  - NERVOUS SYSTEM DISORDER [None]
  - NO THERAPEUTIC RESPONSE [None]
  - PANIC ATTACK [None]
  - PAIN [None]
  - REBOUND EFFECT [None]
  - SENSORY LOSS [None]
  - DYSPEPSIA [None]
  - RESPIRATORY DISORDER [None]
  - HOT FLUSH [None]
  - NAUSEA [None]
  - FEAR [None]
  - PRODUCT TAMPERING [None]
  - WITHDRAWAL SYNDROME [None]
